FAERS Safety Report 6705252-0 (Version None)
Quarter: 2010Q2

REPORT INFORMATION
  Report Type: 
  Country: None (occurrence: None)
  Receive Date: 20100430
  Receipt Date: 20100419
  Transmission Date: 20101027
  Serious: Yes (Death, Other)
  Sender: FDA-Public Use
  Company Number: US-ELI_LILLY_AND_COMPANY-US201004005250

PATIENT
  Age: 57 Year
  Sex: Male

DRUGS (4)
  1. CYMBALTA [Suspect]
  2. FENTANYL [Concomitant]
  3. TRAZODONE HCL [Concomitant]
  4. RISPERIDONE [Concomitant]

REACTIONS (1)
  - DRUG TOXICITY [None]
